FAERS Safety Report 4389761-8 (Version None)
Quarter: 2004Q2

REPORT INFORMATION
  Report Type: 
  Country: None (occurrence: None)
  Receive Date: 20040630
  Receipt Date: 20040617
  Transmission Date: 20050107
  Serious: Yes (Other)
  Sender: FDA-Public Use
  Company Number: DE-SHR-03-017743

PATIENT
  Age: 35 Year
  Sex: Female

DRUGS (1)
  1. MIRENA [Suspect]
     Dosage: 20 MCG, CONT, INTRA-UTERINE
     Route: 015
     Dates: start: 20010801, end: 20031120

REACTIONS (4)
  - KERATOCONJUNCTIVITIS SICCA [None]
  - NERVOUS SYSTEM DISORDER [None]
  - PARAESTHESIA [None]
  - TREMOR [None]
